FAERS Safety Report 5478289-X (Version None)
Quarter: 2007Q4

REPORT INFORMATION
  Report Type: 
  Country: None (occurrence: None)
  Receive Date: 20071005
  Receipt Date: 20070926
  Transmission Date: 20080405
  Serious: Yes (Hospitalization)
  Sender: FDA-Public Use
  Company Number: JP-ASTRAZENECA-2007AP06176

PATIENT
  Age: 5815 Day
  Sex: Male
  Weight: 91 kg

DRUGS (21)
  1. DIPRIVAN [Suspect]
     Indication: SEDATION
     Route: 042
     Dates: start: 20070809, end: 20070809
  2. INOVAN [Concomitant]
     Route: 065
     Dates: start: 20070809, end: 20070809
  3. EPHEDRINE HYDROCHLORIDE [Concomitant]
     Route: 065
     Dates: start: 20070809, end: 20070809
  4. CALCICOL [Concomitant]
     Route: 065
     Dates: start: 20070809, end: 20070809
  5. XYLOCAINE W/ EPINEPHRINE [Concomitant]
     Route: 065
     Dates: start: 20070809, end: 20070809
  6. SEISHOKU [Concomitant]
     Route: 065
     Dates: start: 20070809, end: 20070809
  7. MEXAN [Concomitant]
     Route: 065
     Dates: start: 20070809, end: 20070809
  8. ATROPINE SULFATE [Concomitant]
     Route: 065
     Dates: start: 20070809, end: 20070809
  9. FAMOTIDINE [Concomitant]
     Route: 065
     Dates: start: 20070809, end: 20070809
  10. FAMOTIDINE [Concomitant]
     Route: 065
     Dates: start: 20070809, end: 20070810
  11. ULTIVA [Concomitant]
     Dosage: UNKNOWN FREQUENCY OF DIVIDED DOSE
     Route: 042
     Dates: start: 20070809, end: 20070809
  12. DORMICUM [Concomitant]
     Route: 065
     Dates: start: 20070809, end: 20070809
  13. SALINHES [Concomitant]
     Route: 065
     Dates: start: 20070809, end: 20070809
  14. ANEXATE TAB [Concomitant]
     Route: 065
     Dates: start: 20070809, end: 20070809
  15. MUSCURATE [Concomitant]
     Route: 042
     Dates: start: 20070809, end: 20070809
  16. BICARBON [Concomitant]
     Route: 065
     Dates: start: 20070809, end: 20070809
  17. FENTANYL [Concomitant]
     Route: 065
     Dates: start: 20070809, end: 20070809
  18. HEPARIN SODIUM [Concomitant]
     Route: 065
     Dates: start: 20070809, end: 20070809
  19. LACTEC-G [Concomitant]
     Route: 065
     Dates: start: 20070809, end: 20070809
  20. CEFAMEZIN ALPHA [Concomitant]
     Dosage: UNKNOWN FREQUENCY OF DIVIDED DOSE
     Route: 041
     Dates: start: 20070809, end: 20070809
  21. CEFAMEZIN ALPHA [Concomitant]
     Dosage: UNKNOWN FREQUENCY OF DIVIDED DOSE
     Route: 041
     Dates: start: 20070810, end: 20070811

REACTIONS (1)
  - HEPATIC ENZYME INCREASED [None]
